FAERS Safety Report 17100096 (Version 2)
Quarter: 2020Q1

REPORT INFORMATION
  Report Type: Spontaneous
  Country: US (occurrence: US)
  Receive Date: 20191202
  Receipt Date: 20200117
  Transmission Date: 20200409
  Serious: Yes (Other)
  Sender: FDA-Public Use
  Company Number: US-BAYER-2019-215449

PATIENT
  Age: 33 Year
  Sex: Female

DRUGS (1)
  1. MIRENA [Suspect]
     Active Substance: LEVONORGESTREL
     Indication: CONTRACEPTION
     Dosage: 20 MCG/24HR, CONT
     Route: 015
     Dates: start: 20190422, end: 20191212

REACTIONS (5)
  - Adnexa uteri cyst [None]
  - Complication of device removal [None]
  - Embedded device [None]
  - Pelvic pain [None]
  - Ovarian cyst [None]

NARRATIVE: CASE EVENT DATE: 2019
